FAERS Safety Report 7677816-1 (Version None)
Quarter: 2011Q3

REPORT INFORMATION
  Report Type: 
  Country: None (occurrence: None)
  Receive Date: 20110811
  Receipt Date: 20110802
  Transmission Date: 20111222
  Serious: Yes (Other)
  Sender: FDA-Public Use
  Company Number: CA-JNJFOC-20110803380

PATIENT
  Sex: Female
  Weight: 50 kg

DRUGS (1)
  1. REMICADE [Suspect]
     Indication: COLITIS ULCERATIVE
     Route: 042
     Dates: start: 20110302, end: 20110609

REACTIONS (4)
  - DIARRHOEA [None]
  - MALAISE [None]
  - HAEMORRHAGE [None]
  - THERAPEUTIC RESPONSE DECREASED [None]
